FAERS Safety Report 6672202-5 (Version None)
Quarter: 2010Q2

REPORT INFORMATION
  Report Type: 
  Country: None (occurrence: None)
  Receive Date: 20100408
  Receipt Date: 20100401
  Transmission Date: 20101027
  Serious: Yes (Other)
  Sender: FDA-Public Use
  Company Number: US-BIOGENIDEC-2010BI011133

PATIENT
  Age: 52 Year
  Sex: Female

DRUGS (7)
  1. AVONEX [Suspect]
     Indication: MULTIPLE SCLEROSIS
  2. PROTONIX [Concomitant]
  3. LIPITOR [Concomitant]
  4. ZOLOFT [Concomitant]
     Indication: DEPRESSION
  5. FOSAMAX [Concomitant]
  6. BACLOFEN [Concomitant]
     Indication: MUSCLE SPASTICITY
  7. NEURONTIN [Concomitant]
     Indication: NEURALGIA

REACTIONS (1)
  - NEURALGIA [None]
